FAERS Safety Report 22174889 (Version 1)
Quarter: 2023Q2

REPORT INFORMATION
  Report Type: Spontaneous
  Country: KR (occurrence: KR)
  Receive Date: 20230405
  Receipt Date: 20230405
  Transmission Date: 20230722
  Serious: Yes (Other)
  Sender: FDA-Public Use
  Company Number: KR-002147023-NVSC2023KR077564

PATIENT
  Age: 58 Year
  Sex: Male
  Weight: 79 kg

DRUGS (2)
  1. EXFORGE [Suspect]
     Active Substance: AMLODIPINE BESYLATE\VALSARTAN
     Indication: Hypertension
     Dosage: UNK (5/80 MG)
     Route: 065
  2. EXFORGE [Suspect]
     Active Substance: AMLODIPINE BESYLATE\VALSARTAN
     Dosage: UNK (5/160 MG)
     Route: 065

REACTIONS (2)
  - Diabetes mellitus [Unknown]
  - Blood pressure increased [Unknown]
